FAERS Safety Report 24834767 (Version 1)
Quarter: 2025Q1

REPORT INFORMATION
  Report Type: Spontaneous
  Country: US (occurrence: None)
  Receive Date: 20250110
  Receipt Date: 20250110
  Transmission Date: 20250409
  Serious: No
  Sender: FDA-CTU
  Company Number: None

PATIENT
  Age: 12 Year
  Sex: Male

DRUGS (1)
  1. GIVINOSTAT [Suspect]
     Active Substance: GIVINOSTAT
     Dates: start: 20241118

REACTIONS (2)
  - Blood triglycerides increased [None]
  - Platelet count decreased [None]

NARRATIVE: CASE EVENT DATE: 20241230
